FAERS Safety Report 4493042-1 (Version None)
Quarter: 2004Q4

REPORT INFORMATION
  Report Type: 
  Country: None (occurrence: None)
  Receive Date: 20041020
  Receipt Date: 20040708
  Transmission Date: 20050328
  Serious: No
  Sender: FDA-Public Use
  Company Number: 601381

PATIENT
  Age: 73 Year
  Sex: Female
  Weight: 63.5036 kg

DRUGS (7)
  1. ARALAST [Suspect]
     Indication: ALPHA-1 ANTI-TRYPSIN DEFICIENCY
     Dosage: 4 GM; QW; INTRAVENOUS
     Route: 042
     Dates: start: 20040330
  2. SEREVENT [Concomitant]
  3. QVAR 40 [Concomitant]
  4. NASONEX [Concomitant]
  5. CO-DIOVAN [Concomitant]
  6. NORVASC [Concomitant]
  7. SINEMET [Concomitant]

REACTIONS (5)
  - BACK PAIN [None]
  - FATIGUE [None]
  - PAIN [None]
  - POST PROCEDURAL COMPLICATION [None]
  - RASH [None]
